FAERS Safety Report 9437142 (Version 2)
Quarter: 2013Q3

REPORT INFORMATION
  Report Type: Spontaneous
  Country: CA (occurrence: CA)
  Receive Date: 20130802
  Receipt Date: 20130910
  Transmission Date: 20140515
  Serious: Yes (Hospitalization)
  Sender: FDA-Public Use
  Company Number: CA-JNJFOC-20130207054

PATIENT
  Age: 25 Year
  Sex: Male

DRUGS (17)
  1. INVEGA SUSTENNA [Suspect]
     Indication: PSYCHOTIC DISORDER
     Route: 030
     Dates: start: 20120615
  2. INVEGA SUSTENNA [Suspect]
     Indication: PSYCHOTIC DISORDER
     Route: 030
     Dates: start: 20130204
  3. INVEGA SUSTENNA [Suspect]
     Indication: PSYCHOTIC DISORDER
     Route: 030
     Dates: start: 20130117
  4. INVEGA SUSTENNA [Suspect]
     Indication: PSYCHOTIC DISORDER
     Route: 030
     Dates: start: 20130228, end: 20130411
  5. INVEGA SUSTENNA [Suspect]
     Indication: PSYCHOTIC DISORDER
     Route: 030
     Dates: start: 20130206
  6. INVEGA SUSTENNA [Suspect]
     Indication: PSYCHOTIC DISORDER
     Route: 030
     Dates: start: 20120605
  7. INVEGA SUSTENNA [Suspect]
     Indication: PSYCHOTIC DISORDER
     Route: 030
     Dates: start: 20121227
  8. INVEGA SUSTENNA [Suspect]
     Indication: PSYCHOTIC DISORDER
     Route: 030
     Dates: end: 20130228
  9. INVEGA SUSTENNA [Suspect]
     Indication: DEPRESSION
     Route: 030
     Dates: start: 20130117
  10. INVEGA SUSTENNA [Suspect]
     Indication: DEPRESSION
     Route: 030
     Dates: start: 20130206
  11. INVEGA SUSTENNA [Suspect]
     Indication: DEPRESSION
     Route: 030
     Dates: start: 20120605
  12. INVEGA SUSTENNA [Suspect]
     Indication: DEPRESSION
     Route: 030
     Dates: start: 20130204
  13. INVEGA SUSTENNA [Suspect]
     Indication: DEPRESSION
     Route: 030
     Dates: start: 20121227
  14. INVEGA SUSTENNA [Suspect]
     Indication: DEPRESSION
     Route: 030
     Dates: end: 20130228
  15. INVEGA SUSTENNA [Suspect]
     Indication: DEPRESSION
     Route: 030
     Dates: start: 20120615
  16. INVEGA SUSTENNA [Suspect]
     Indication: DEPRESSION
     Route: 030
     Dates: start: 20130228, end: 20130411
  17. RISPERDAL CONSTA [Suspect]
     Indication: PRODUCT USED FOR UNKNOWN INDICATION
     Route: 030
     Dates: start: 20130411

REACTIONS (2)
  - Injection site abscess [Not Recovered/Not Resolved]
  - Drug ineffective [Unknown]
